FAERS Safety Report 8205478-3 (Version None)
Quarter: 2012Q1

REPORT INFORMATION
  Report Type: 
  Country: None (occurrence: None)
  Receive Date: 20120313
  Receipt Date: 20120301
  Transmission Date: 20120608
  Serious: Yes (Death, Life-Threatening, Hospitalization, Other)
  Sender: FDA-Public Use
  Company Number: ES-BRISTOL-MYERS SQUIBB COMPANY-16442766

PATIENT
  Age: 78 Year
  Sex: Female

DRUGS (6)
  1. ACENOCOUMAROL [Concomitant]
  2. METFORMIN HCL [Suspect]
     Indication: TYPE 2 DIABETES MELLITUS
  3. GLIPIZIDE [Concomitant]
  4. LERCANIDIPINE [Concomitant]
  5. LISINOPRIL AND HYDROCHLOROTHIAZIDE [Concomitant]
     Dosage: 1DF=20/12.5MG
  6. IBUPROFEN [Suspect]
     Indication: BONE PAIN

REACTIONS (10)
  - DEPRESSED LEVEL OF CONSCIOUSNESS [None]
  - VOMITING [None]
  - GENERAL PHYSICAL HEALTH DETERIORATION [None]
  - LACTIC ACIDOSIS [None]
  - COMA [None]
  - HYPOTENSION [None]
  - BONE PAIN [None]
  - HYPOPERFUSION [None]
  - MENINGITIS PNEUMOCOCCAL [None]
  - BLOOD CREATININE ABNORMAL [None]
